FAERS Safety Report 7693111-9 (Version None)
Quarter: 2011Q3

REPORT INFORMATION
  Report Type: 
  Country: None (occurrence: None)
  Receive Date: 20110816
  Receipt Date: 20110804
  Transmission Date: 20111222
  Serious: Yes (Other)
  Sender: FDA-Public Use
  Company Number: 201181005925

PATIENT
  Age: 70 Year
  Sex: Female

DRUGS (5)
  1. ZEVALIN [Suspect]
     Indication: NON-HODGKIN'S LYMPHOMA
     Dosage: X1
     Dates: start: 20040506, end: 20040506
  2. RITUXIMAB (RITUXIMAB) [Suspect]
     Indication: NON-HODGKIN'S LYMPHOMA
     Dosage: 450MG, X1
     Dates: start: 20040429, end: 20040429
  3. CYCLOPSHOPHAMIDE (CYCLOPHOSPHAMIDE) [Concomitant]
  4. PREDNISONE [Concomitant]
  5. VINCRISTINE [Concomitant]

REACTIONS (1)
  - BREAST CANCER FEMALE [None]
